FAERS Safety Report 4302976-X (Version None)
Quarter: 2004Q1

REPORT INFORMATION
  Report Type: 
  Country: None (occurrence: None)
  Receive Date: 20040224
  Receipt Date: 20040219
  Transmission Date: 20041129
  Serious: Yes (Other)
  Sender: FDA-Public Use
  Company Number: CA-GLAXOSMITHKLINE-A0499094A

PATIENT
  Age: 30 Year
  Sex: Female

DRUGS (5)
  1. IMITREX [Suspect]
     Indication: DRUG USE FOR UNKNOWN INDICATION
     Dosage: 24TAB MONTHLY
     Route: 048
  2. CODEINE [Concomitant]
     Indication: DRUG USE FOR UNKNOWN INDICATION
  3. GRAVOL TAB [Concomitant]
     Indication: DRUG USE FOR UNKNOWN INDICATION
  4. RIVOTRIL [Concomitant]
     Indication: DRUG USE FOR UNKNOWN INDICATION
  5. MOTILIUM [Concomitant]
     Indication: DRUG USE FOR UNKNOWN INDICATION

REACTIONS (3)
  - DRUG TOXICITY [None]
  - MULTIPLE SCLEROSIS [None]
  - MYELITIS [None]
